FAERS Safety Report 8764070 (Version 3)
Quarter: 2013Q2

REPORT INFORMATION
  Report Type: Spontaneous
  Country: US (occurrence: US)
  Receive Date: 20120831
  Receipt Date: 20130409
  Transmission Date: 20140414
  Serious: Yes (Other)
  Sender: FDA-Public Use
  Company Number: US-PFIZER INC-2012212677

PATIENT
  Age: 66 Year
  Sex: Female
  Weight: 56.69 kg

DRUGS (7)
  1. SUTENT [Suspect]
     Indication: PANCREATIC NEUROENDOCRINE TUMOUR
     Dosage: 37.5 MG, 1X/DAY
     Dates: start: 20120722, end: 20130329
  2. SANDOSTATIN [Concomitant]
     Indication: PANCREATIC NEUROENDOCRINE TUMOUR
     Dosage: UNK
     Route: 030
     Dates: start: 200710
  3. VITAMIN D [Concomitant]
     Dosage: UNK
  4. PROPANOLOL [Concomitant]
     Dosage: UNK
  5. PRANDIN [Concomitant]
     Dosage: UNK
  6. PRIMIDONE [Concomitant]
     Dosage: UNK
  7. OCTREOTIDE [Concomitant]
     Dosage: UNK

REACTIONS (18)
  - Pancreatitis [Unknown]
  - Dehydration [Unknown]
  - Ascites [Not Recovered/Not Resolved]
  - Candida infection [Not Recovered/Not Resolved]
  - Rash [Recovered/Resolved]
  - Malaise [Unknown]
  - Fatigue [Recovered/Resolved]
  - Asthenia [Unknown]
  - Eructation [Unknown]
  - Flatulence [Unknown]
  - Decreased appetite [Recovered/Resolved]
  - Anxiety [Not Recovered/Not Resolved]
  - Cardiac murmur functional [Not Recovered/Not Resolved]
  - Tenderness [Not Recovered/Not Resolved]
  - Pallor [Unknown]
  - Tremor [Unknown]
  - Jaundice [Unknown]
  - Hepatomegaly [Unknown]
